FAERS Safety Report 7816078-9 (Version None)
Quarter: 2011Q4

REPORT INFORMATION
  Report Type: 
  Country: None (occurrence: None)
  Receive Date: 20111015
  Receipt Date: 20111010
  Transmission Date: 20120403
  Serious: Yes (Death)
  Sender: FDA-Public Use
  Company Number: US-ASTRAZENECA-2011SE48443

PATIENT
  Age: 48 Year
  Sex: Female

DRUGS (1)
  1. IRESSA [Suspect]
     Indication: BRONCHIAL CARCINOMA
     Route: 048
     Dates: start: 20070924

REACTIONS (1)
  - DEATH [None]
